FAERS Safety Report 4553508-2 (Version None)
Quarter: 2004Q4

REPORT INFORMATION
  Report Type: 
  Country: None (occurrence: None)
  Receive Date: 20041227
  Receipt Date: 20041021
  Transmission Date: 20050328
  Serious: No
  Sender: FDA-Public Use
  Company Number: 04P-163-0278547-00

PATIENT
  Age: 56 Year
  Sex: Female

DRUGS (5)
  1. HUMIRA [Suspect]
     Indication: RHEUMATOID ARTHRITIS
     Dosage: 40 MG, 1 IN 2 WK, SUBCUTANEOUS
     Route: 058
     Dates: start: 20031001
  2. RANITIDINE HYDROCHLORIDE [Concomitant]
  3. LORATADINE [Concomitant]
  4. ESOMEPRAZOLE [Concomitant]
  5. IBUPROFEN [Concomitant]

REACTIONS (4)
  - CHEST PAIN [None]
  - DYSGEUSIA [None]
  - INJECTION SITE ERYTHEMA [None]
  - INJECTION SITE SWELLING [None]
